FAERS Safety Report 23559652 (Version 2)
Quarter: 2024Q1

REPORT INFORMATION
  Report Type: Spontaneous
  Country: US (occurrence: US)
  Receive Date: 20240223
  Receipt Date: 20240228
  Transmission Date: 20240409
  Serious: Yes (Other)
  Sender: FDA-Public Use
  Company Number: US-NOVEN PHARMACEUTICALS, INC.-2024-NOV-US000182

PATIENT
  Sex: Female
  Weight: 61.224 kg

DRUGS (9)
  1. COMBIPATCH [Suspect]
     Active Substance: ESTRADIOL\NORETHINDRONE ACETATE
     Indication: Menopausal symptoms
     Dosage: UNKNOWN
     Route: 062
  2. OMEPRAZOLE [Concomitant]
     Active Substance: OMEPRAZOLE
     Indication: Dyspepsia
     Dosage: 40 MG, ONCE DAILY
     Route: 048
  3. SEROQUEL [Concomitant]
     Active Substance: QUETIAPINE FUMARATE
     Indication: Sleep disorder
     Dosage: 25MG/ 3 TABS TID
     Route: 065
  4. SEROQUEL [Concomitant]
     Active Substance: QUETIAPINE FUMARATE
     Indication: Anxiety
  5. GABAPENTIN [Concomitant]
     Active Substance: GABAPENTIN
     Indication: Sleep disorder
     Dosage: 100MG/ 1-3 TABS BID
     Route: 065
  6. GABAPENTIN [Concomitant]
     Active Substance: GABAPENTIN
     Indication: Anxiety
  7. VALACYCLOVIR [Concomitant]
     Active Substance: VALACYCLOVIR HYDROCHLORIDE
     Indication: Product used for unknown indication
     Dosage: 250MG, QOD
     Route: 048
  8. ALLEGRA [Concomitant]
     Active Substance: FEXOFENADINE HYDROCHLORIDE
     Indication: Seasonal allergy
     Dosage: UNK, PRN
     Route: 065
  9. XYZAL [Concomitant]
     Active Substance: LEVOCETIRIZINE DIHYDROCHLORIDE
     Indication: Seasonal allergy
     Dosage: UNK, PRN
     Route: 065

REACTIONS (1)
  - Ovarian cyst [Recovered/Resolved]
